FAERS Safety Report 10129744 (Version 1)
Quarter: 2014Q2

REPORT INFORMATION
  Report Type: Spontaneous
  Country: US (occurrence: None)
  Receive Date: 20140425
  Receipt Date: 20140425
  Transmission Date: 20141212
  Serious: Yes (Hospitalization)
  Sender: FDA-Public Use
  Company Number: None

PATIENT
  Age: 34 Year
  Sex: Female
  Weight: 65 kg

DRUGS (1)
  1. CISPLATIN [Suspect]

REACTIONS (7)
  - Vomiting [None]
  - Pain [None]
  - Nausea [None]
  - Constipation [None]
  - Leukocytosis [None]
  - Pyuria [None]
  - Pelvic pain [None]
